FAERS Safety Report 18277701 (Version 1)
Quarter: 2020Q3

REPORT INFORMATION
  Report Type: Spontaneous
  Country: IT (occurrence: IT)
  Receive Date: 20200917
  Receipt Date: 20200917
  Transmission Date: 20201103
  Serious: Yes (Hospitalization)
  Sender: FDA-Public Use
  Company Number: IT-TAKEDA-2020TUS039036

PATIENT
  Age: 23 Year
  Sex: Male

DRUGS (1)
  1. BRINTELLIX [Suspect]
     Active Substance: VORTIOXETINE HYDROBROMIDE
     Indication: DEPRESSION SUICIDAL
     Dosage: 10 MILLIGRAM
     Route: 065

REACTIONS (2)
  - Self-injurious ideation [Unknown]
  - Feeling abnormal [Unknown]
